FAERS Safety Report 13426495 (Version 3)
Quarter: 2017Q2

REPORT INFORMATION
  Report Type: Report from Study
  Country: PL (occurrence: PL)
  Receive Date: 20170411
  Receipt Date: 20170608
  Transmission Date: 20170830
  Serious: Yes (Hospitalization)
  Sender: FDA-Public Use
  Company Number: PL-BIOGEN-2017BI00376505

PATIENT
  Age: 30 Year
  Sex: Male
  Weight: 72 kg

DRUGS (4)
  1. CONTRATUBEX [Concomitant]
     Indication: PROPHYLAXIS
     Route: 065
     Dates: start: 20151120
  2. DACLIZUMAB HYP [Suspect]
     Active Substance: DACLIZUMAB
     Indication: MULTIPLE SCLEROSIS
     Route: 058
     Dates: start: 20151118
  3. RUTINACEA (ASCORBIC ACID) [Concomitant]
     Indication: PROPHYLAXIS
     Route: 065
     Dates: start: 20150107
  4. NILOGRIN [Concomitant]
     Indication: VERTIGO
     Route: 065
     Dates: start: 20140607

REACTIONS (1)
  - Erythema nodosum [Recovered/Resolved]

NARRATIVE: CASE EVENT DATE: 20170318
